FAERS Safety Report 6279776-7 (Version None)
Quarter: 2009Q3

REPORT INFORMATION
  Report Type: 
  Country: None (occurrence: None)
  Receive Date: 20090723
  Receipt Date: 20090615
  Transmission Date: 20100115
  Serious: No
  Sender: FDA-Public Use
  Company Number: US-BAYER-200924681NA

PATIENT
  Age: 29 Year
  Sex: Female

DRUGS (1)
  1. MAGNEVIST [Suspect]
     Indication: NUCLEAR MAGNETIC RESONANCE IMAGING BRAIN
     Dosage: LINE FLUSHED, HAND INJECTED INTO LEFT ANTECUBITAL
     Dates: start: 20090610, end: 20090610

REACTIONS (2)
  - ABDOMINAL PAIN [None]
  - URTICARIA [None]
